FAERS Safety Report 4378213-7 (Version None)
Quarter: 2004Q2

REPORT INFORMATION
  Report Type: 
  Country: None (occurrence: None)
  Receive Date: 20040609
  Receipt Date: 20040525
  Transmission Date: 20050107
  Serious: Yes (Hospitalization, Other)
  Sender: FDA-Public Use
  Company Number: USA040568537

PATIENT
  Age: 84 Year
  Sex: Female

DRUGS (1)
  1. EVISTA [Suspect]
     Indication: OSTEOPOROSIS
     Dosage: 60 MG DAY
     Dates: start: 20010101, end: 20030101

REACTIONS (4)
  - FALL [None]
  - HIP FRACTURE [None]
  - SPINAL COMPRESSION FRACTURE [None]
  - WRIST FRACTURE [None]
